FAERS Safety Report 16041016 (Version 1)
Quarter: 2019Q1

REPORT INFORMATION
  Report Type: Spontaneous
  Country: US (occurrence: US)
  Receive Date: 20190206
  Receipt Date: 20190206
  Transmission Date: 20190418
  Serious: Yes (Hospitalization)
  Sender: FDA-Public Use
  Company Number: None

PATIENT
  Age: 62 Year
  Sex: Male
  Weight: 102 kg

DRUGS (2)
  1. SERTRALINE [Suspect]
     Active Substance: SERTRALINE HYDROCHLORIDE
     Indication: DEPRESSION
     Route: 048
     Dates: start: 20180508, end: 20190126
  2. BUPRENORPHINE/NALOXONE [Suspect]
     Active Substance: BUPRENORPHINE\NALOXONE
     Indication: SUBSTANCE ABUSE
     Route: 048
     Dates: start: 20190115, end: 20190122

REACTIONS (5)
  - Serotonin syndrome [None]
  - Muscle rigidity [None]
  - Hyperreflexia [None]
  - Confusional state [None]
  - Delirium [None]

NARRATIVE: CASE EVENT DATE: 20190117
